FAERS Safety Report 6520725-1 (Version None)
Quarter: 2009Q4

REPORT INFORMATION
  Report Type: 
  Country: None (occurrence: None)
  Receive Date: 20091229
  Receipt Date: 20091215
  Transmission Date: 20100525
  Serious: Yes (Hospitalization)
  Sender: FDA-Public Use
  Company Number: US-BIOGENIDEC-2009BI037603

PATIENT
  Age: 59 Year
  Sex: Female
  Weight: 43 kg

DRUGS (16)
  1. TYSABRI [Suspect]
     Indication: MULTIPLE SCLEROSIS
     Route: 042
     Dates: start: 20070730, end: 20091105
  2. DEXEDRINE [Concomitant]
     Indication: FATIGUE
     Route: 048
  3. WELLBUTRIN [Concomitant]
     Indication: DEPRESSION
     Route: 048
  4. VALTREX [Concomitant]
     Indication: HERPES SIMPLEX
     Route: 048
  5. VITAMIN B-12 [Concomitant]
     Indication: ANAEMIA VITAMIN B12 DEFICIENCY
  6. VITAMIN D [Concomitant]
     Indication: VITAMIN D DEFICIENCY
  7. ACIPHEX [Concomitant]
     Route: 048
  8. RANITIDINE HCL [Concomitant]
     Indication: GASTROOESOPHAGEAL REFLUX DISEASE
     Route: 048
  9. IMITREX [Concomitant]
     Indication: MIGRAINE
     Route: 048
  10. INDERAL LA [Concomitant]
     Indication: MIGRAINE
     Route: 048
  11. INDERAL LA [Concomitant]
     Route: 048
  12. PROZAC [Concomitant]
     Indication: DEPRESSION
     Route: 048
  13. PROZAC [Concomitant]
  14. NITROGLYCERIN 2% OINTMENT [Concomitant]
     Indication: DRUG USE FOR UNKNOWN INDICATION
  15. XANAX [Concomitant]
     Indication: MUSCLE SPASMS
     Route: 048
  16. XANAX [Concomitant]
     Route: 048

REACTIONS (2)
  - FALL [None]
  - MULTIPLE SCLEROSIS RELAPSE [None]
